FAERS Safety Report 11630041 (Version 1)
Quarter: 2015Q4

REPORT INFORMATION
  Report Type: Spontaneous
  Country: BR (occurrence: BR)
  Receive Date: 20151014
  Receipt Date: 20151014
  Transmission Date: 20160304
  Serious: Yes (Other)
  Sender: FDA-Public Use
  Company Number: BR-SHIRE-BR201512630

PATIENT
  Age: 21 Year
  Sex: Female
  Weight: 56 kg

DRUGS (1)
  1. VENVANSE [Suspect]
     Active Substance: LISDEXAMFETAMINE DIMESYLATE
     Indication: ATTENTION DEFICIT/HYPERACTIVITY DISORDER
     Dosage: 30 MG, 1X/DAY:QD (MORNING)
     Route: 048
     Dates: start: 201507, end: 201507

REACTIONS (4)
  - Decreased appetite [Recovered/Resolved]
  - Depression [Recovered/Resolved]
  - Suicidal ideation [Recovered/Resolved]
  - Irritability [Recovered/Resolved]

NARRATIVE: CASE EVENT DATE: 201507
